FAERS Safety Report 6581037-3 (Version None)
Quarter: 2010Q1

REPORT INFORMATION
  Report Type: 
  Country: None (occurrence: None)
  Receive Date: 20100215
  Receipt Date: 20100111
  Transmission Date: 20100710
  Serious: Yes (Hospitalization)
  Sender: FDA-Public Use
  Company Number: PHHY2010DE02568

PATIENT
  Age: 2 Year
  Sex: Female
  Weight: 15 kg

DRUGS (1)
  1. PRAVIDEL [Suspect]
     Dosage: 5 MG, UNK
     Route: 048
     Dates: start: 20100111, end: 20100111

REACTIONS (2)
  - ACCIDENTAL EXPOSURE [None]
  - VOMITING [None]
